FAERS Safety Report 6127136-1 (Version None)
Quarter: 2009Q1

REPORT INFORMATION
  Report Type: 
  Country: None (occurrence: None)
  Receive Date: 20090320
  Receipt Date: 20090306
  Transmission Date: 20090719
  Serious: Yes (Hospitalization, Other)
  Sender: FDA-Public Use
  Company Number: AU-PFIZER INC-2009181843

PATIENT

DRUGS (3)
  1. SERTRALINE HCL [Suspect]
     Route: 048
  2. PROMETHAZINE [Suspect]
     Dosage: 750 MG, UNK
     Route: 048
  3. PERICIAZINE [Suspect]
     Dosage: 750 MG, UNK
     Route: 048

REACTIONS (2)
  - DRUG TOXICITY [None]
  - GRAND MAL CONVULSION [None]
